FAERS Safety Report 21592806 (Version 2)
Quarter: 2022Q4

REPORT INFORMATION
  Report Type: Report from Study
  Country: CN (occurrence: None)
  Receive Date: 20221114
  Receipt Date: 20221206
  Transmission Date: 20230113
  Serious: Yes (Hospitalization)
  Sender: FDA-Public Use
  Company Number: CN-Eisai Medical Research-EC-2022-127950

PATIENT
  Age: 61 Year
  Sex: Male
  Weight: 64 kg

DRUGS (6)
  1. LENVATINIB [Suspect]
     Active Substance: LENVATINIB
     Indication: Hepatocellular carcinoma
     Dosage: STARTING DOSE AT 12 MILLIGRAM, FLUCTUATED DOSAGE
     Route: 048
     Dates: start: 20210609, end: 20221012
  2. LENVATINIB [Suspect]
     Active Substance: LENVATINIB
     Route: 048
     Dates: start: 20221013
  3. PEMBROLIZUMAB [Suspect]
     Active Substance: PEMBROLIZUMAB
     Indication: Hepatocellular carcinoma
     Route: 042
     Dates: start: 20210609, end: 20220826
  4. PEMBROLIZUMAB [Suspect]
     Active Substance: PEMBROLIZUMAB
     Route: 042
     Dates: start: 20221013
  5. EPIRUBICIN [Suspect]
     Active Substance: EPIRUBICIN
     Indication: Hepatocellular carcinoma
     Dosage: FREQUENCY UNKNOWN
     Dates: start: 20210622, end: 20210622
  6. TENOFOVIR DISOPROXIL FUMARATE [Concomitant]
     Active Substance: TENOFOVIR DISOPROXIL FUMARATE
     Dates: start: 200612

REACTIONS (1)
  - Hyponatraemia [Recovered/Resolved]

NARRATIVE: CASE EVENT DATE: 20220929
